FAERS Safety Report 4346858-6 (Version None)
Quarter: 2004Q1

REPORT INFORMATION
  Report Type: 
  Country: None (occurrence: None)
  Receive Date: 20040329
  Receipt Date: 20031209
  Transmission Date: 20041129
  Serious: No
  Sender: FDA-Public Use
  Company Number: USA031254368

PATIENT
  Sex: Female

DRUGS (4)
  1. STRATTERA [Suspect]
     Dosage: 40 MG/DAY
     Dates: start: 20031202, end: 20031209
  2. PROZAC [Concomitant]
  3. ALLEGRA [Concomitant]
  4. SINGULAIR [Concomitant]

REACTIONS (3)
  - ABNORMAL FAECES [None]
  - CONSTIPATION [None]
  - SOMNOLENCE [None]
